FAERS Safety Report 7734501 (Version 6)
Quarter: 2014Q1

REPORT INFORMATION
  Report Type: Spontaneous
  Country: US (occurrence: US)
  Receive Date: 20101223
  Receipt Date: 20140321
  Transmission Date: 20141002
  Serious: Yes (Hospitalization, Other)
  Sender: FDA-Public Use
  Company Number: US-BAYER-2010-003100

PATIENT
  Age: 38 Year
  Sex: Female
  Weight: 77 kg

DRUGS (16)
  1. YAZ [Suspect]
     Dosage: UNK
     Route: 048
     Dates: start: 201002, end: 201006
  2. YAZ [Suspect]
     Route: 048
  3. BUPROPION [Concomitant]
     Indication: DEPRESSION
     Dosage: 300 MG, UNK
     Dates: start: 2006, end: 2011
  4. KLONOPIN [Concomitant]
     Indication: ANXIETY
     Dosage: UNK
     Dates: start: 2006
  5. MEDICOL [Concomitant]
     Dosage: UNK
     Route: 048
     Dates: start: 20091019
  6. CIPRO [Concomitant]
     Indication: INFECTION
     Dosage: 500 MG, UNK
     Dates: start: 20091027
  7. POLYROSSIN [Concomitant]
     Indication: COUGH
     Dosage: UNK
     Dates: start: 20091027
  8. COUGH SYRUP [Concomitant]
     Indication: COUGH
     Dosage: UNK
     Dates: start: 20091028
  9. MORPHINE [Concomitant]
     Dosage: 5 MG, UNK
     Route: 042
     Dates: start: 20091031
  10. ZOFRAN [Concomitant]
     Dosage: 4 MG, UNK
     Route: 042
     Dates: start: 20091031
  11. IBUPROFEN [Concomitant]
     Dosage: 600 MG, UNK
     Route: 048
     Dates: start: 20090805
  12. DESONIDE [Concomitant]
     Dosage: 0.05 %, UNK
     Route: 061
     Dates: start: 20090817
  13. METHYLPREDNISOLONE [Concomitant]
     Dosage: 4 MG, UNK
     Route: 048
  14. MEDROL [METHYLPREDNISOLONE ACETATE] [Concomitant]
     Route: 048
  15. PROTONIX [Concomitant]
  16. WELLBUTRIN [Concomitant]

REACTIONS (13)
  - Cholelithiasis [None]
  - Cholecystitis chronic [None]
  - Biliary colic [None]
  - Cholecystitis infective [None]
  - Pancreatolithiasis [None]
  - Hepatic enzyme abnormal [None]
  - Depression [None]
  - Anxiety [None]
  - Pain [None]
  - Nausea [None]
  - Dizziness [None]
  - Chest pain [None]
  - Anxiety [None]
